FAERS Safety Report 7437305-6 (Version None)
Quarter: 2011Q2

REPORT INFORMATION
  Report Type: 
  Country: None (occurrence: None)
  Receive Date: 20110426
  Receipt Date: 20110419
  Transmission Date: 20111010
  Serious: Yes (Other)
  Sender: FDA-Public Use
  Company Number: DE-GENZYME-FLUD-1001090

PATIENT
  Age: 10 Year
  Sex: Male

DRUGS (8)
  1. THYMOGLOBULIN [Suspect]
     Indication: HYPER IGE SYNDROME
     Dosage: 10 MG/KG, QD ON DAYS -3 TO -1
     Route: 065
  2. THYMOGLOBULIN [Suspect]
     Indication: STEM CELL TRANSPLANT
  3. MYCOPHENOLATE MEFETIL [Concomitant]
     Indication: PROPHYLAXIS AGAINST GRAFT VERSUS HOST DISEASE
  4. FLUDARA [Suspect]
     Indication: HYPER IGE SYNDROME
     Dosage: 160 MG/M2, QD ON DAYS -7 TO -4
     Route: 065
  5. MELPHALAN [Suspect]
     Indication: HYPER IGE SYNDROME
     Dosage: 140 MG/M2, QD ON DAY -3
     Route: 065
  6. FLUDARA [Suspect]
     Indication: STEM CELL TRANSPLANT
  7. CYCLOSPORINE [Concomitant]
     Indication: PROPHYLAXIS AGAINST GRAFT VERSUS HOST DISEASE
  8. MELPHALAN [Suspect]
     Indication: STEM CELL TRANSPLANT

REACTIONS (5)
  - ECZEMA [None]
  - MOLLUSCUM CONTAGIOSUM [None]
  - SINUSITIS [None]
  - ANAEMIA HAEMOLYTIC AUTOIMMUNE [None]
  - BACTERIAL INFECTION [None]
